FAERS Safety Report 24002722 (Version 1)
Quarter: 2024Q2

REPORT INFORMATION
  Report Type: Spontaneous
  Country: US (occurrence: US)
  Receive Date: 20240624
  Receipt Date: 20240624
  Transmission Date: 20240716
  Serious: No
  Sender: FDA-Public Use
  Company Number: US-STRIDES ARCOLAB LIMITED-2024SP005236

PATIENT
  Age: 6 Decade
  Sex: Male

DRUGS (8)
  1. GABAPENTIN [Suspect]
     Active Substance: GABAPENTIN
     Indication: Back pain
     Dosage: UNK (RECEIVED UNDER A TRIAL)
     Route: 065
  2. GABAPENTIN [Suspect]
     Active Substance: GABAPENTIN
     Indication: Pain in extremity
  3. GABAPENTIN [Suspect]
     Active Substance: GABAPENTIN
     Indication: Arthralgia
  4. GABAPENTIN [Suspect]
     Active Substance: GABAPENTIN
     Indication: Back pain
  5. DULOXETINE [Concomitant]
     Active Substance: DULOXETINE
     Indication: Back pain
     Dosage: UNK (RECEIVED UNDER A TRIAL)
     Route: 065
  6. DULOXETINE [Concomitant]
     Active Substance: DULOXETINE
     Indication: Pain in extremity
  7. DULOXETINE [Concomitant]
     Active Substance: DULOXETINE
     Indication: Arthralgia
  8. DULOXETINE [Concomitant]
     Active Substance: DULOXETINE
     Indication: Back pain

REACTIONS (1)
  - Off label use [Unknown]
